FAERS Safety Report 17861287 (Version 1)
Quarter: 2020Q2

REPORT INFORMATION
  Report Type: Spontaneous
  Country: US (occurrence: US)
  Receive Date: 20200604
  Receipt Date: 20200604
  Transmission Date: 20200714
  Serious: No
  Sender: FDA-Public Use
  Company Number: US-HARMONY BIOSCIENCES-2020HMY00258

PATIENT
  Age: 33 Year
  Sex: Female
  Weight: 68.03 kg

DRUGS (3)
  1. IBUPROFEN. [Concomitant]
     Active Substance: IBUPROFEN
  2. WAKIX [Suspect]
     Active Substance: PITOLISANT HYDROCHLORIDE
     Indication: NARCOLEPSY
     Dosage: 8.9 MG, 1X/DAY
     Route: 048
     Dates: start: 20200310, end: 20200316
  3. WAKIX [Suspect]
     Active Substance: PITOLISANT HYDROCHLORIDE
     Indication: NARCOLEPSY
     Dosage: 17.8 MG, 1X/DAY
     Route: 048
     Dates: start: 20200317, end: 202003

REACTIONS (7)
  - Nasal congestion [Not Recovered/Not Resolved]
  - Hypersensitivity [Not Recovered/Not Resolved]
  - Unevaluable event [Not Recovered/Not Resolved]
  - Narcolepsy [Unknown]
  - Drug ineffective [Recovered/Resolved]
  - Dizziness [Not Recovered/Not Resolved]
  - Abnormal dreams [Not Recovered/Not Resolved]

NARRATIVE: CASE EVENT DATE: 202003
